FAERS Safety Report 24186295 (Version 10)
Quarter: 2025Q2

REPORT INFORMATION
  Report Type: Report from Study
  Country: MX (occurrence: MX)
  Receive Date: 20240808
  Receipt Date: 20250629
  Transmission Date: 20250717
  Serious: Yes (Other)
  Sender: TAKEDA
  Company Number: MX-TAKEDA-2024TUS035443

PATIENT
  Age: 12 Year
  Sex: Male

DRUGS (9)
  1. ICATIBANT [Suspect]
     Active Substance: ICATIBANT ACETATE
     Indication: Hereditary angioedema
  2. ICATIBANT [Suspect]
     Active Substance: ICATIBANT ACETATE
  3. ICATIBANT [Suspect]
     Active Substance: ICATIBANT ACETATE
  4. ICATIBANT [Suspect]
     Active Substance: ICATIBANT ACETATE
  5. ICATIBANT [Suspect]
     Active Substance: ICATIBANT ACETATE
  6. METHYLPHENIDATE [Concomitant]
     Active Substance: METHYLPHENIDATE
  7. OXCARBAZEPINE [Concomitant]
     Active Substance: OXCARBAZEPINE
  8. MONTELUKAST [Concomitant]
     Active Substance: MONTELUKAST
  9. MOMETASONE [Concomitant]
     Active Substance: MOMETASONE

REACTIONS (32)
  - Epilepsy [Recovered/Resolved]
  - Dengue haemorrhagic fever [Unknown]
  - Seizure [Recovered/Resolved]
  - Loss of consciousness [Recovered/Resolved]
  - Injury [Unknown]
  - Crying [Unknown]
  - Screaming [Unknown]
  - Application site discomfort [Unknown]
  - Application site erythema [Unknown]
  - Vomiting [Unknown]
  - Discomfort [Unknown]
  - Fear of injection [Unknown]
  - Nervousness [Unknown]
  - Fall [Unknown]
  - Lip injury [Unknown]
  - Tooth injury [Unknown]
  - Pain [Unknown]
  - Fatigue [Unknown]
  - Joint injury [Unknown]
  - Tremor [Unknown]
  - Injection site haemorrhage [Unknown]
  - Stress [Unknown]
  - Nausea [Recovered/Resolved]
  - Abdominal discomfort [Recovered/Resolved]
  - Sensitisation [Unknown]
  - Aggression [Unknown]
  - Frustration tolerance decreased [Unknown]
  - Irritability [Unknown]
  - Decreased appetite [Recovered/Resolved]
  - Dyspepsia [Recovered/Resolved]
  - Eructation [Recovered/Resolved]
  - Scratch [Not Recovered/Not Resolved]

NARRATIVE: CASE EVENT DATE: 20240405
